FAERS Safety Report 8307331-3 (Version None)
Quarter: 2012Q2

REPORT INFORMATION
  Report Type: 
  Country: None (occurrence: None)
  Receive Date: 20120420
  Receipt Date: 20120409
  Transmission Date: 20120825
  Serious: Yes (Hospitalization)
  Sender: FDA-Public Use
  Company Number: 2012S1000309

PATIENT
  Age: 77 Year
  Sex: Female

DRUGS (6)
  1. ALPRAM [Concomitant]
  2. ASPIRIN [Concomitant]
  3. RAMIPRIL [Concomitant]
  4. LIVALO [Suspect]
     Indication: ACUTE MYOCARDIAL INFARCTION
     Dosage: 4 MG;1X;PO
     Route: 048
     Dates: start: 20110725
  5. BISOPROLOL FUMARATE [Concomitant]
  6. CLOPIDOGREL BISULFATE [Suspect]
     Indication: ACUTE MYOCARDIAL INFARCTION
     Dosage: 75 MG;1X
     Dates: start: 20110723

REACTIONS (7)
  - CATHETER SITE RELATED REACTION [None]
  - HAEMOGLOBIN DECREASED [None]
  - CATHETER SITE SWELLING [None]
  - BLISTER [None]
  - HYPOAESTHESIA [None]
  - DRUG INTERACTION [None]
  - INCISION SITE HAEMORRHAGE [None]
